FAERS Safety Report 6772635-2 (Version None)
Quarter: 2010Q2

REPORT INFORMATION
  Report Type: 
  Country: None (occurrence: None)
  Receive Date: 20100616
  Receipt Date: 20100331
  Transmission Date: 20101027
  Serious: No
  Sender: FDA-Public Use
  Company Number: US-ASTRAZENECA-2010SE14216

PATIENT
  Age: 70 Year
  Sex: Male
  Weight: 61.7 kg

DRUGS (5)
  1. PULMICORT [Suspect]
     Route: 055
     Dates: start: 20100201
  2. SEREVENT [Suspect]
     Route: 065
     Dates: start: 20100201
  3. ALVESCO [Suspect]
     Indication: DRY THROAT
     Dosage: 320 UG BID INHALATION
     Route: 065
     Dates: start: 20100201
  4. ALVESCO [Suspect]
     Indication: DYSPHONIA
     Dosage: 320 UG BID INHALATION
     Route: 065
     Dates: start: 20100201
  5. XALATAN [Concomitant]

REACTIONS (5)
  - DRY THROAT [None]
  - DYSPHONIA [None]
  - EXPIRED DRUG ADMINISTERED [None]
  - INCREASED UPPER AIRWAY SECRETION [None]
  - THROAT IRRITATION [None]
